FAERS Safety Report 8571341-1 (Version None)
Quarter: 2012Q3

REPORT INFORMATION
  Report Type: 
  Country: None (occurrence: None)
  Receive Date: 20120806
  Receipt Date: 20120703
  Transmission Date: 20120928
  Serious: No
  Sender: FDA-Public Use
  Company Number: US-009507513-1207USA001636

PATIENT

DRUGS (6)
  1. VICTRELIS [Suspect]
     Dosage: 800 MG, TID
     Route: 048
  2. PEGASYS [Concomitant]
  3. ASPIRIN [Concomitant]
     Dosage: 81 MG, UNK
  4. VERAMYST [Concomitant]
     Dosage: 27.5 MICROGRAM, UNK
  5. LEVOXYL [Concomitant]
     Dosage: 137 MICROGRAM, UNK
  6. REBETOL [Concomitant]
     Dosage: 200 MG, UNK

REACTIONS (1)
  - FATIGUE [None]
